FAERS Safety Report 5759163-8 (Version None)
Quarter: 2008Q2

REPORT INFORMATION
  Report Type: 
  Country: None (occurrence: None)
  Receive Date: 20080604
  Receipt Date: 20080523
  Transmission Date: 20081010
  Serious: Yes (Death)
  Sender: FDA-Public Use
  Company Number: US-PFIZER INC-2008031660

PATIENT
  Sex: Female

DRUGS (1)
  1. CHANTIX [Suspect]

REACTIONS (4)
  - DEATH [None]
  - DRUG INEFFECTIVE [None]
  - NAUSEA [None]
  - VOMITING [None]
